FAERS Safety Report 20131884 (Version 2)
Quarter: 2021Q4

REPORT INFORMATION
  Report Type: Spontaneous
  Country: PT (occurrence: None)
  Receive Date: 20211130
  Receipt Date: 20211227
  Transmission Date: 20220303
  Serious: Yes (Life-Threatening)
  Sender: FDA-Public Use
  Company Number: 2021A835920

PATIENT
  Age: 42 Year
  Sex: Male
  Weight: 75 kg

DRUGS (1)
  1. DURVALUMAB [Suspect]
     Active Substance: DURVALUMAB
     Indication: Lung neoplasm malignant
     Dosage: 1500MG 4/4 WEEKS
     Route: 042
     Dates: start: 20210712, end: 20211004

REACTIONS (4)
  - Anaemia [Unknown]
  - Adenopathy syphilitic [Unknown]
  - Swelling [Unknown]
  - Disease progression [Unknown]

NARRATIVE: CASE EVENT DATE: 20210906
